FAERS Safety Report 23259676 (Version 2)
Quarter: 2023Q4

REPORT INFORMATION
  Report Type: Spontaneous
  Country: US (occurrence: US)
  Receive Date: 20231204
  Receipt Date: 20231218
  Transmission Date: 20240109
  Serious: Yes (Other)
  Sender: FDA-Public Use
  Company Number: US-PFIZER INC-PV202300195080

PATIENT
  Age: 73 Year
  Sex: Female
  Weight: 64 kg

DRUGS (9)
  1. IBRANCE [Suspect]
     Active Substance: PALBOCICLIB
     Indication: Breast cancer female
     Dosage: 100 MG, CYCLIC (TAKE ONE TAB DAILY FOR 21 DAYS OFF 7 DAYS)
     Route: 048
  2. IBRANCE [Suspect]
     Active Substance: PALBOCICLIB
     Indication: Neoplasm malignant
  3. IBRANCE [Suspect]
     Active Substance: PALBOCICLIB
     Indication: Metastases to bone
  4. IBRANCE [Suspect]
     Active Substance: PALBOCICLIB
     Indication: Breast cancer female
     Dosage: 100 MG
     Route: 048
  5. IBRANCE [Suspect]
     Active Substance: PALBOCICLIB
     Indication: Metastases to bone
  6. IBRANCE [Suspect]
     Active Substance: PALBOCICLIB
     Indication: Neoplasm malignant
  7. AROMASIN [Suspect]
     Active Substance: EXEMESTANE
     Dosage: 25 MG, DAILY
     Route: 048
  8. EXEMESTANE [Suspect]
     Active Substance: EXEMESTANE
     Dosage: 25 MG, DAILY
     Route: 048
     Dates: start: 20231113
  9. LETROZOLE [Concomitant]
     Active Substance: LETROZOLE
     Dosage: UNK
     Dates: start: 202204

REACTIONS (22)
  - Leukopenia [Unknown]
  - Pancytopenia [Unknown]
  - Diarrhoea [Recovering/Resolving]
  - Arthralgia [Unknown]
  - Fatigue [Unknown]
  - Blood chloride increased [Unknown]
  - Anion gap decreased [Unknown]
  - Blood urea increased [Unknown]
  - Blood creatinine increased [Unknown]
  - Glomerular filtration rate decreased [Unknown]
  - White blood cell count decreased [Unknown]
  - Red blood cell count decreased [Unknown]
  - Haemoglobin decreased [Unknown]
  - Haematocrit decreased [Unknown]
  - Mean cell volume increased [Unknown]
  - Mean cell haemoglobin increased [Unknown]
  - Red cell distribution width increased [Unknown]
  - Mean platelet volume decreased [Unknown]
  - Neutrophil percentage decreased [Unknown]
  - Monocyte percentage increased [Unknown]
  - Neutrophil count decreased [Unknown]
  - Lymphocyte count decreased [Unknown]

NARRATIVE: CASE EVENT DATE: 20231110
